FAERS Safety Report 15198024 (Version 1)
Quarter: 2018Q3

REPORT INFORMATION
  Report Type: Spontaneous
  Country: US (occurrence: US)
  Receive Date: 20180725
  Receipt Date: 20180725
  Transmission Date: 20181010
  Serious: No
  Sender: FDA-Public Use
  Company Number: US-ABBVIE-18S-163-2359461-00

PATIENT
  Age: 64 Year
  Sex: Female
  Weight: 92.62 kg

DRUGS (11)
  1. SYNTHROID [Suspect]
     Active Substance: LEVOTHYROXINE SODIUM
     Indication: RADIOTHERAPY TO THYROID
     Route: 048
  2. TIROSINT [Suspect]
     Active Substance: LEVOTHYROXINE SODIUM
     Indication: CYSTITIS RADIATION
     Dosage: ONE 150MCG CAPSULE, ONE 100MCG CAPSULE AND ONE 25MCG CAPSULE DAILY
     Route: 048
     Dates: start: 201803, end: 20180326
  3. LEVOTHYROXINE. [Suspect]
     Active Substance: LEVOTHYROXINE
     Indication: RADIOTHERAPY TO THYROID
     Route: 065
  4. VITAMIN D [Concomitant]
     Active Substance: CHOLECALCIFEROL
     Indication: PRODUCT USED FOR UNKNOWN INDICATION
  5. TIROSINT [Suspect]
     Active Substance: LEVOTHYROXINE SODIUM
     Dosage: ONE 150MCG CAPSULE AND THREE 25MCG CAPSULES DAILY
     Route: 048
     Dates: start: 20180327
  6. ARMOUR THYROID [Suspect]
     Active Substance: THYROID, PORCINE
     Indication: RADIOTHERAPY TO THYROID
     Route: 065
     Dates: start: 2001
  7. OMEPRAZOLE. [Concomitant]
     Active Substance: OMEPRAZOLE
     Indication: GASTROOESOPHAGEAL REFLUX DISEASE
     Dosage: AS NEEDED
  8. TIROSINT [Suspect]
     Active Substance: LEVOTHYROXINE SODIUM
     Indication: NASOPHARYNGEAL CANCER
     Route: 048
  9. LEVOXYL [Suspect]
     Active Substance: LEVOTHYROXINE SODIUM
     Indication: RADIOTHERAPY TO THYROID
     Route: 065
  10. LOSARTAN. [Concomitant]
     Active Substance: LOSARTAN
     Indication: BLOOD PRESSURE ABNORMAL
  11. TIROSINT [Suspect]
     Active Substance: LEVOTHYROXINE SODIUM
     Indication: RADIOTHERAPY
     Dosage: ONE 150 CAPSULE AND ONE 25MCG CAPSULE DAILY
     Route: 048
     Dates: start: 201801, end: 201803

REACTIONS (11)
  - Asthenia [Unknown]
  - Thyroid function test abnormal [Unknown]
  - Alopecia [Unknown]
  - Drug level below therapeutic [Unknown]
  - Depression [Unknown]
  - Anxiety [Unknown]
  - Incorrect dose administered [Unknown]
  - Feeling abnormal [Unknown]
  - Weight increased [Unknown]
  - Insomnia [Unknown]
  - Dizziness [Unknown]

NARRATIVE: CASE EVENT DATE: 201801
